FAERS Safety Report 9061872 (Version 1)
Quarter: 2013Q1

REPORT INFORMATION
  Report Type: Spontaneous
  Country: US (occurrence: US)
  Receive Date: 20130204
  Receipt Date: 20130204
  Transmission Date: 20140127
  Serious: Yes (Other)
  Sender: FDA-Public Use
  Company Number: US-ELI_LILLY_AND_COMPANY-US201301010216

PATIENT
  Age: 61 Year
  Sex: Female

DRUGS (5)
  1. CYMBALTA [Suspect]
     Indication: DEPRESSION
     Dosage: 60 MG, QD
     Dates: start: 2010
  2. CYMBALTA [Suspect]
     Dosage: 90 MG, QD
  3. CYMBALTA [Suspect]
     Dosage: 30 MG, QD
     Dates: end: 201212
  4. VALIUM [Concomitant]
     Indication: MUSCLE SPASMS
     Dosage: UNK, UNKNOWN
  5. HYDROCODONE [Concomitant]
     Dosage: UNK, QD

REACTIONS (24)
  - Loss of consciousness [Unknown]
  - Concussion [Unknown]
  - Fall [Unknown]
  - Blood potassium decreased [Unknown]
  - Arthropathy [Unknown]
  - Tooth disorder [Unknown]
  - Intervertebral disc disorder [Unknown]
  - Dyspnoea [Unknown]
  - Balance disorder [Unknown]
  - Muscle disorder [Unknown]
  - Dry eye [Unknown]
  - Dry mouth [Unknown]
  - Dizziness [Unknown]
  - Fatigue [Unknown]
  - Arthralgia [Unknown]
  - Constipation [Unknown]
  - Musculoskeletal stiffness [Unknown]
  - Confusional state [Unknown]
  - Blood sodium decreased [Unknown]
  - Weight increased [Unknown]
  - Mania [Unknown]
  - Headache [Not Recovered/Not Resolved]
  - Anxiety [Not Recovered/Not Resolved]
  - Nausea [Unknown]
